FAERS Safety Report 25731889 (Version 3)
Quarter: 2025Q4

REPORT INFORMATION
  Report Type: Spontaneous
  Country: CA (occurrence: CA)
  Receive Date: 20250827
  Receipt Date: 20251124
  Transmission Date: 20260118
  Serious: Yes (Other)
  Sender: PFIZER
  Company Number: CA-PFIZER INC-202500169013

PATIENT
  Age: 24 Year
  Sex: Male
  Weight: 102 kg

DRUGS (3)
  1. IXIFI [Suspect]
     Active Substance: INFLIXIMAB-QBTX
     Indication: Pyoderma gangrenosum
     Dosage: 6 MG/KG, EVERY 8 WEEKS
     Route: 042
     Dates: start: 20250609
  2. IXIFI [Suspect]
     Active Substance: INFLIXIMAB-QBTX
     Dosage: 594 MG,15 WEEK(6 MG/KG, EVERY 8 WEEKS)
     Route: 042
     Dates: start: 20250922
  3. IXIFI [Suspect]
     Active Substance: INFLIXIMAB-QBTX
     Dosage: 600 MG 8 WEEKS (6 MG/KG,EVERY 8 WEEKS)
     Route: 042
     Dates: start: 20251117

REACTIONS (2)
  - Clavicle fracture [Not Recovered/Not Resolved]
  - Weight increased [Not Recovered/Not Resolved]

NARRATIVE: CASE EVENT DATE: 20250922
